FAERS Safety Report 6252538-2 (Version None)
Quarter: 2009Q2

REPORT INFORMATION
  Report Type: 
  Country: None (occurrence: None)
  Receive Date: 20090629
  Receipt Date: 20090629
  Transmission Date: 20091009
  Serious: Yes (Death)
  Sender: FDA-Public Use
  Company Number: None

PATIENT
  Age: 30 Year
  Sex: Female
  Weight: 116.1208 kg

DRUGS (2)
  1. GEODON [Suspect]
     Indication: DEPRESSION
     Dosage: 40 MG
     Dates: start: 20081001, end: 20081101
  2. GEODON [Suspect]
     Dosage: 40 MG

REACTIONS (2)
  - CONVULSION [None]
  - MYOCARDIAL INFARCTION [None]
